FAERS Safety Report 7524448-1 (Version None)
Quarter: 2011Q2

REPORT INFORMATION
  Report Type: 
  Country: None (occurrence: None)
  Receive Date: 20110601
  Receipt Date: 20110601
  Transmission Date: 20111010
  Serious: Yes (Other)
  Sender: FDA-Public Use
  Company Number: None

PATIENT
  Age: 64 Year
  Sex: Female
  Weight: 63.6 kg

DRUGS (1)
  1. BONIVA [Suspect]
     Indication: OSTEOPOROSIS
     Dosage: BONIVA150 MG Q MONTH ORAL
     Route: 048
     Dates: start: 20050101, end: 20100101

REACTIONS (7)
  - ERUCTATION [None]
  - GASTROOESOPHAGEAL REFLUX DISEASE [None]
  - DYSPHAGIA [None]
  - OESOPHAGEAL PAIN [None]
  - DYSPEPSIA [None]
  - COUGH [None]
  - TOOTH FRACTURE [None]
